FAERS Safety Report 10463749 (Version 2)
Quarter: 2014Q4

REPORT INFORMATION
  Report Type: Report from Study
  Country: US (occurrence: US)
  Receive Date: 20140919
  Receipt Date: 20141015
  Transmission Date: 20150528
  Serious: Yes (Hospitalization)
  Sender: FDA-Public Use
  Company Number: US-SA-2014SA106499

PATIENT
  Sex: Female

DRUGS (6)
  1. LANTUS SOLOSTAR [Suspect]
     Active Substance: INSULIN GLARGINE
     Indication: TYPE 2 DIABETES MELLITUS
     Dosage: DOSE:32 UNIT(S)
     Route: 065
  2. LANTUS SOLOSTAR [Suspect]
     Active Substance: INSULIN GLARGINE
     Indication: TYPE 2 DIABETES MELLITUS
     Dosage: DOSE:20 UNIT(S)
     Route: 065
  3. LANTUS SOLOSTAR [Suspect]
     Active Substance: INSULIN GLARGINE
     Indication: TYPE 2 DIABETES MELLITUS
     Dosage: DOSE:42 UNIT(S)
     Route: 065
  4. SOLOSTAR [Concomitant]
     Active Substance: DEVICE
     Dosage: DOSE:32 UNIT(S)
  5. SOLOSTAR [Concomitant]
     Active Substance: DEVICE
     Dosage: DOSE:20 UNIT(S)
  6. SOLOSTAR [Concomitant]
     Active Substance: DEVICE
     Dosage: DOSE:42 UNIT(S)

REACTIONS (4)
  - Hospitalisation [Unknown]
  - Appetite disorder [Unknown]
  - Blood glucose increased [Not Recovered/Not Resolved]
  - Weight fluctuation [Unknown]
